FAERS Safety Report 6677248-9 (Version None)
Quarter: 2010Q2

REPORT INFORMATION
  Report Type: 
  Country: None (occurrence: None)
  Receive Date: 20100408
  Receipt Date: 20100408
  Transmission Date: 20101027
  Serious: No
  Sender: FDA-Public Use
  Company Number: None

PATIENT
  Age: 78 Year
  Sex: Female
  Weight: 66 kg

DRUGS (7)
  1. VANCOMYCIN [Suspect]
     Indication: OSTEOMYELITIS
     Dosage: 1500 MG Q 24 IV
     Route: 042
     Dates: start: 20100228
  2. VASOTEC [Suspect]
     Indication: HYPERTENSION
     Dosage: 1.25 MG Q 8 PRN IV
     Route: 042
     Dates: start: 20100303, end: 20100308
  3. NORVASC [Concomitant]
  4. NITRO-BID [Concomitant]
  5. NEURONTIN [Concomitant]
  6. SEROQUEL [Concomitant]
  7. SYNTHROID [Concomitant]

REACTIONS (1)
  - RASH MACULO-PAPULAR [None]
